FAERS Safety Report 10774233 (Version 1)
Quarter: 2015Q1

REPORT INFORMATION
  Report Type: Spontaneous
  Country: US (occurrence: US)
  Receive Date: 20150209
  Receipt Date: 20150209
  Transmission Date: 20150721
  Serious: Yes (Other)
  Sender: FDA-Public Use
  Company Number: US-ACORDA-ACO_31424_2012

PATIENT
  Age: 60 Year
  Sex: Female

DRUGS (2)
  1. AMPYRA [Suspect]
     Active Substance: DALFAMPRIDINE
     Indication: PRODUCT USED FOR UNKNOWN INDICATION
     Dosage: 10 MG, BID
     Route: 048
     Dates: end: 20120728
  2. AMPYRA [Suspect]
     Active Substance: DALFAMPRIDINE
     Dosage: 10MG Q12 HOURS

REACTIONS (7)
  - Gait disturbance [Recovered/Resolved]
  - Limb discomfort [Unknown]
  - Paraesthesia [Unknown]
  - Fall [Unknown]
  - Gait disturbance [Unknown]
  - Laceration [Unknown]
  - Balance disorder [Unknown]

NARRATIVE: CASE EVENT DATE: 2012
